FAERS Safety Report 5803525-7 (Version None)
Quarter: 2008Q3

REPORT INFORMATION
  Report Type: 
  Country: None (occurrence: None)
  Receive Date: 20080708
  Receipt Date: 20080626
  Transmission Date: 20090109
  Serious: Yes (Hospitalization)
  Sender: FDA-Public Use
  Company Number: JP-ASTRAZENECA-2008AP03934

PATIENT
  Age: 20438 Day
  Sex: Female

DRUGS (5)
  1. SEROQUEL [Suspect]
     Indication: PERSECUTORY DELUSION
     Route: 048
     Dates: start: 20080416, end: 20080428
  2. CEFMETAZON [Suspect]
     Indication: C-REACTIVE PROTEIN INCREASED
     Route: 041
     Dates: start: 20080423, end: 20080426
  3. SERENACE [Suspect]
     Indication: PERSECUTORY DELUSION
     Dosage: DILUTED IN 100 ML SALINE, GIVEN OVER AN HOUR.
     Route: 041
     Dates: start: 20080426, end: 20080427
  4. CORTRIL [Concomitant]
     Indication: POSTPARTUM HYPOPITUITARISM
     Dosage: 1.5 DF/DAY IN TWO DOSES
     Route: 048
     Dates: start: 20080416
  5. LEVOTHYROXINE SODIUM [Concomitant]
     Indication: POSTPARTUM HYPOPITUITARISM
     Route: 048
     Dates: start: 20080416

REACTIONS (1)
  - HEPATIC FUNCTION ABNORMAL [None]
